FAERS Safety Report 16931741 (Version 1)
Quarter: 2019Q4

REPORT INFORMATION
  Report Type: Spontaneous
  Country: US (occurrence: US)
  Receive Date: 20191017
  Receipt Date: 20191017
  Transmission Date: 20200122
  Serious: Yes (Hospitalization)
  Sender: FDA-Public Use
  Company Number: US-FRESENIUS MEDICAL CARE RENAL THERAPIES GROUP-FMC-1910-001360

PATIENT
  Sex: Male
  Weight: 93 kg

DRUGS (14)
  1. DELFLEX WITH DEXTROSE 1.5% LOW MAGNESIUM LOW CALCIUM [Suspect]
     Active Substance: CALCIUM CHLORIDE\DEXTROSE\MAGNESIUM CHLORIDE\SODIUM CHLORIDE\SODIUM LACTATE
     Indication: END STAGE RENAL DISEASE
     Dosage: FILL VOLUME = 3000 ML, 5 EXCHANGES, NO LAST FILL OR DAYTIME EXCHANGE
     Route: 033
     Dates: start: 20130226
  2. COLECALCIFEROL/CALCIUM [Concomitant]
  3. SEVELAMER CARBONATE. [Concomitant]
     Active Substance: SEVELAMER CARBONATE
  4. DELFLEX WITH DEXTROSE 4.25% LOW MAGNESIUM LOW CALCIUM [Suspect]
     Active Substance: CALCIUM CHLORIDE\DEXTROSE\MAGNESIUM CHLORIDE\SODIUM CHLORIDE\SODIUM LACTATE
     Indication: END STAGE RENAL DISEASE
     Dosage: FILL VOLUME = 3000 ML, 5 EXCHANGES, NO LAST FILL OR DAYTIME EXCHANGE
     Route: 033
     Dates: start: 20130226
  5. ATORVASTATIN [Concomitant]
     Active Substance: ATORVASTATIN
  6. ENTACAPONE. [Concomitant]
     Active Substance: ENTACAPONE
  7. ASCORBIC ACID/PYRIDOXINE HYDROCHLORIDE/BIOTIN/FOLIC ACID/THIAMINE/NICOTINIC ACID/PANTOTHENIC ACID/RI [Concomitant]
  8. LEVODOPA/CARBIDOPA [Concomitant]
  9. MACROGOL 3350 [Concomitant]
     Active Substance: POLYETHYLENE GLYCOL 3350
  10. POTASSIUM CHLORIDE. [Concomitant]
     Active Substance: POTASSIUM CHLORIDE
  11. DELFLEX WITH DEXTROSE 2.5% LOW MAGNESIUM LOW CALCIUM [Suspect]
     Active Substance: CALCIUM CHLORIDE\DEXTROSE\MAGNESIUM CHLORIDE\SODIUM CHLORIDE\SODIUM LACTATE
     Indication: END STAGE RENAL DISEASE
     Dosage: FILL VOLUME = 3000 ML, 5 EXCHANGES, NO LAST FILL OR DAYTIME EXCHANGE
     Route: 033
     Dates: start: 20130226
  12. AMLODIPINE [Concomitant]
     Active Substance: AMLODIPINE BESYLATE
  13. DELFLEX WITH DEXTROSE 1.5% LOW MAGNESIUM LOW CALCIUM [Suspect]
     Active Substance: CALCIUM CHLORIDE\DEXTROSE\MAGNESIUM CHLORIDE\SODIUM CHLORIDE\SODIUM LACTATE
     Dosage: FILL VOLUME = 3000 ML, 5 EXCHANGES, NO LAST FILL OR DAYTIME EXCHANGE
     Route: 033
     Dates: start: 20130226
  14. CARVEDILOL. [Concomitant]
     Active Substance: CARVEDILOL

REACTIONS (2)
  - Peritonitis [Recovering/Resolving]
  - Pyelonephritis [Recovering/Resolving]
